FAERS Safety Report 14232716 (Version 1)
Quarter: 2017Q4

REPORT INFORMATION
  Report Type: Spontaneous
  Country: US (occurrence: US)
  Receive Date: 20171128
  Receipt Date: 20171128
  Transmission Date: 20180321
  Serious: No
  Sender: FDA-Public Use
  Company Number: US-JNJFOC-20171013967

PATIENT
  Age: 66 Year
  Sex: Female
  Weight: 63.5 kg

DRUGS (3)
  1. ZYRTEC [Suspect]
     Active Substance: CETIRIZINE HYDROCHLORIDE
     Indication: PRURITUS
     Dosage: TOTAL OF 2 TABS W/IN 24 HRS. 1 TAB IN THE EVENING OF 11-OCT-2017 THEN ANOTHER TAB ABOUT 16 HRS AFTER
     Route: 048
     Dates: start: 20171011
  2. ZYRTEC [Suspect]
     Active Substance: CETIRIZINE HYDROCHLORIDE
     Indication: URTICARIA
     Dosage: TOTAL OF 2 TABS W/IN 24 HRS. 1 TAB IN THE EVENING OF 11-OCT-2017 THEN ANOTHER TAB ABOUT 16 HRS AFTER
     Route: 048
     Dates: start: 20171011
  3. ZYRTEC [Suspect]
     Active Substance: CETIRIZINE HYDROCHLORIDE
     Indication: ADVERSE DRUG REACTION
     Dosage: TOTAL OF 2 TABS W/IN 24 HRS. 1 TAB IN THE EVENING OF 11-OCT-2017 THEN ANOTHER TAB ABOUT 16 HRS AFTER
     Route: 048
     Dates: start: 20171011

REACTIONS (3)
  - Off label use [Unknown]
  - Drug ineffective for unapproved indication [Unknown]
  - Overdose [Unknown]

NARRATIVE: CASE EVENT DATE: 20171011
